FAERS Safety Report 18185986 (Version 1)
Quarter: 2020Q3

REPORT INFORMATION
  Report Type: Spontaneous
  Country: DE (occurrence: DE)
  Receive Date: 20200824
  Receipt Date: 20200824
  Transmission Date: 20201103
  Serious: Yes (Life-Threatening, Hospitalization)
  Sender: FDA-Public Use
  Company Number: DE-DEXPHARM-20200704

PATIENT
  Age: 82 Year
  Sex: Male

DRUGS (12)
  1. METOPROLOL. [Concomitant]
     Active Substance: METOPROLOL
     Dosage: 23.75 MG, 0?0?1?0
  2. CLEXANE [Concomitant]
     Active Substance: ENOXAPARIN SODIUM
     Dosage: 40 MG, 0?0?1?0
  3. PANTOPRAZOL [Concomitant]
     Active Substance: PANTOPRAZOLE SODIUM
     Dosage: 40 MG, 1?0?0?0
  4. AMLODIPIN [Concomitant]
     Active Substance: AMLODIPINE BESYLATE
     Dosage: 5 MG, 1?0?1?0
  5. SIMVASTATIN. [Concomitant]
     Active Substance: SIMVASTATIN
     Dosage: 20 MG, 0?0?1?0
  6. RISPERIDONE. [Suspect]
     Active Substance: RISPERIDONE
     Dosage: 0.5 MG, 1?0?0?1
  7. TAMSULOSIN [Concomitant]
     Active Substance: TAMSULOSIN
     Dosage: 0.4 MG, 1?0?0?0
  8. PREGABALIN. [Suspect]
     Active Substance: PREGABALIN
     Dosage: 75 MG, 1?0?1?0
  9. METAMIZOL [Concomitant]
     Active Substance: METAMIZOLE SODIUM
     Dosage: 500 MG/ML, 30?30?30?30
  10. TORASEMID [Concomitant]
     Active Substance: TORSEMIDE
     Dosage: 5 MG, 1?0?0?0
  11. MIRTAZAPIN [Suspect]
     Active Substance: MIRTAZAPINE
     Dosage: 15 MG, 0?0?1?0
  12. DONEPEZIL NON DEXCEL PRODUCT [Suspect]
     Active Substance: DONEPEZIL
     Dosage: 10  MG, 1?0?0?0

REACTIONS (12)
  - Delirium [Unknown]
  - General physical health deterioration [Unknown]
  - Hypotension [Unknown]
  - Acute kidney injury [Unknown]
  - Confusional state [Unknown]
  - Somnolence [Unknown]
  - Disorientation [Unknown]
  - Product prescribing error [Unknown]
  - Dehydration [Unknown]
  - Treatment noncompliance [Unknown]
  - Depressed level of consciousness [Unknown]
  - Product prescribing issue [Unknown]
